FAERS Safety Report 5723702-3 (Version None)
Quarter: 2008Q2

REPORT INFORMATION
  Report Type: 
  Country: None (occurrence: None)
  Receive Date: 20080428
  Receipt Date: 20080421
  Transmission Date: 20081010
  Serious: Yes (Death)
  Sender: FDA-Public Use
  Company Number: 2008-176130-NL

PATIENT
  Age: 39 Year
  Sex: Female
  Weight: 63.5 kg

DRUGS (14)
  1. REMERON [Suspect]
     Indication: DEPRESSION
     Dates: start: 20071105
  2. REMERON [Suspect]
     Indication: INSOMNIA
     Dates: start: 20071105
  3. RIBAPAK [Suspect]
     Indication: HEPATITIS C
     Dosage: 1 DF BID ORAL, 400 MG / 600 MG
     Route: 048
     Dates: start: 20070911
  4. PEGASYS [Suspect]
     Indication: HEPATITIS C
     Dosage: 180 UG DAILY
     Dates: start: 20050911
  5. ISOPROPYL ALCOHOL COMPOUND LIQUID [Suspect]
     Dosage: DF
  6. ACETONE [Suspect]
     Dosage: DF
  7. PSEUDOEPHEDRINE HCL [Suspect]
     Dosage: DF
  8. METHAMPHETAMINE HYDROCHLORIDE [Suspect]
     Dosage: DF
  9. LEXAPRO [Suspect]
     Indication: DEPRESSION
     Dosage: 40 MG QD
     Dates: start: 20051105
  10. CANNABINOIDS [Suspect]
     Dosage: DF
  11. CHLORPHENAMINE [Concomitant]
     Dosage: DF
  12. BUSPAR [Concomitant]
  13. PRILOSEC [Concomitant]
  14. RISPERDAL [Concomitant]

REACTIONS (5)
  - ANXIETY [None]
  - FATIGUE [None]
  - PAIN [None]
  - THERAPEUTIC AGENT TOXICITY [None]
  - TREATMENT NONCOMPLIANCE [None]
